FAERS Safety Report 21569904 (Version 1)
Quarter: 2022Q4

REPORT INFORMATION
  Report Type: Spontaneous
  Country: CA (occurrence: CA)
  Receive Date: 20221109
  Receipt Date: 20221109
  Transmission Date: 20230112
  Serious: Yes (Other)
  Sender: FDA-Public Use
  Company Number: CA-SA-SAC20221104000076

PATIENT
  Sex: Female

DRUGS (2)
  1. INSULIN GLARGINE [Suspect]
     Active Substance: INSULIN GLARGINE
     Indication: Steroid diabetes
     Dosage: 6 IU, QD
     Route: 058
  2. VICTOZA [Suspect]
     Active Substance: LIRAGLUTIDE
     Indication: Steroid diabetes
     Dosage: 30DOSES(0.6MG)- 15DOSES(1.2MG)- 10DOSES(1.8MG); FREQUENCY: 3 EVERY 1 DAYS

REACTIONS (3)
  - Malignant neoplasm progression [Unknown]
  - Hypoglycaemia [Unknown]
  - Product use in unapproved indication [Unknown]
